FAERS Safety Report 10258238 (Version 1)
Quarter: 2014Q2

REPORT INFORMATION
  Report Type: Report from Study
  Country: DE (occurrence: DE)
  Receive Date: 20140625
  Receipt Date: 20140625
  Transmission Date: 20141212
  Serious: Yes (Congenital Anomaly)
  Sender: FDA-Public Use
  Company Number: PHHY2014DE077561

PATIENT
  Sex: Male

DRUGS (3)
  1. EXTAVIA [Suspect]
     Indication: MULTIPLE SCLEROSIS
     Dosage: MATERNAL DOSE  8000000 IU, QOD
     Route: 064
  2. FEMIBION [Concomitant]
     Indication: PROPHYLAXIS OF NEURAL TUBE DEFECT
     Dosage: MATERNAL EXPOSURE 0.8 MG, QD (BIS 0.4 TRANSPLACENTAL MG PER DAY)
     Route: 064
     Dates: start: 20130131, end: 20131103
  3. GYNO-PEVARYL [Concomitant]
     Indication: VULVOVAGINAL MYCOTIC INFECTION
     Dosage: UNK UKN, UNK
     Route: 064
     Dates: start: 20130801, end: 20130831

REACTIONS (1)
  - Ventricular septal defect [Not Recovered/Not Resolved]
